FAERS Safety Report 11444747 (Version 1)
Quarter: 2015Q3

REPORT INFORMATION
  Report Type: Spontaneous
  Country: US (occurrence: None)
  Receive Date: 20150831
  Receipt Date: 20150831
  Transmission Date: 20151125
  Serious: Yes (Disabling)
  Sender: FDA-Public Use
  Company Number: None

PATIENT
  Age: 86 Year
  Sex: Female
  Weight: 38.1 kg

DRUGS (5)
  1. FORTICAL [Suspect]
     Active Substance: CALCITONIN SALMON
     Indication: OSTEOPOROSIS
     Route: 055
  2. VERAPAMIL [Concomitant]
     Active Substance: VERAPAMIL HYDROCHLORIDE
  3. CALCIUM WITH D [Concomitant]
     Active Substance: CALCIUM\VITAMIN D
  4. ATORVASTATIN [Concomitant]
     Active Substance: ATORVASTATIN
  5. PRADAXA [Concomitant]
     Active Substance: DABIGATRAN ETEXILATE MESYLATE

REACTIONS (2)
  - Osteoporosis [None]
  - Tooth loss [None]

NARRATIVE: CASE EVENT DATE: 20150312
